FAERS Safety Report 25228650 (Version 2)
Quarter: 2025Q2

REPORT INFORMATION
  Report Type: Spontaneous
  Country: IT (occurrence: IT)
  Receive Date: 20250423
  Receipt Date: 20250502
  Transmission Date: 20250716
  Serious: Yes (Other)
  Sender: TEVA
  Company Number: IT-TEVA-VS-3323295

PATIENT
  Age: 65 Year
  Sex: Male

DRUGS (2)
  1. PREDNISONE [Suspect]
     Active Substance: PREDNISONE
     Indication: Immunosuppressant drug therapy
     Route: 065
  2. PREDNISONE [Suspect]
     Active Substance: PREDNISONE
     Indication: Immunosuppressant drug therapy
     Route: 065

REACTIONS (12)
  - Mood swings [Unknown]
  - Dysarthria [Unknown]
  - Hypertension [Unknown]
  - Ecchymosis [Unknown]
  - Disorientation [Unknown]
  - Visual processing disorder [Unknown]
  - Fluid retention [Unknown]
  - Hemiparesis [Unknown]
  - Dermatitis [Unknown]
  - Dysphagia [Unknown]
  - Confusional state [Unknown]
  - Rebound effect [Unknown]
